FAERS Safety Report 7413912-1 (Version None)
Quarter: 2011Q2

REPORT INFORMATION
  Report Type: 
  Country: None (occurrence: None)
  Receive Date: 20110414
  Receipt Date: 20110405
  Transmission Date: 20111010
  Serious: Yes (Hospitalization)
  Sender: FDA-Public Use
  Company Number: US-BIOGENIDEC-2011BI001029

PATIENT
  Age: 51 Year
  Sex: Female

DRUGS (2)
  1. AVONEX [Suspect]
     Indication: MULTIPLE SCLEROSIS
     Route: 030
     Dates: start: 20071001
  2. AVONEX [Suspect]
     Route: 030
     Dates: start: 20090101

REACTIONS (6)
  - URINARY TRACT INFECTION [None]
  - ILL-DEFINED DISORDER [None]
  - DECUBITUS ULCER [None]
  - BODY TEMPERATURE INCREASED [None]
  - NEPHROLITHIASIS [None]
  - CENTRAL VENOUS CATHETERISATION [None]
